FAERS Safety Report 7098317-8 (Version None)
Quarter: 2010Q4

REPORT INFORMATION
  Report Type: 
  Country: None (occurrence: None)
  Receive Date: 20101112
  Receipt Date: 20101103
  Transmission Date: 20110411
  Serious: No
  Sender: FDA-Public Use
  Company Number: US-PFIZER INC-2010140330

PATIENT
  Sex: Female
  Weight: 61 kg

DRUGS (2)
  1. LIPITOR [Suspect]
     Indication: BLOOD CHOLESTEROL INCREASED
     Dosage: 40 MG, DAILY
     Route: 048
     Dates: start: 20070101
  2. VITAMIN D [Concomitant]
     Dosage: 1 DF, MONTHLY

REACTIONS (3)
  - CONSTIPATION [None]
  - DIARRHOEA [None]
  - MUSCULOSKELETAL PAIN [None]
